FAERS Safety Report 18532945 (Version 7)
Quarter: 2021Q3

REPORT INFORMATION
  Report Type: Report from Study
  Country: US (occurrence: US)
  Receive Date: 20201123
  Receipt Date: 20210811
  Transmission Date: 20211014
  Serious: Yes (Other)
  Sender: FDA-Public Use
  Company Number: NVSC2020US303435

PATIENT
  Age: 74 Year
  Sex: Male

DRUGS (4)
  1. AMIODARONE [Suspect]
     Active Substance: AMIODARONE
     Indication: PRODUCT USED FOR UNKNOWN INDICATION
     Dosage: UNK UNK, UNKNOWN
     Route: 065
  2. ENTRESTO [Suspect]
     Active Substance: SACUBITRIL\VALSARTAN
     Indication: PRODUCT USED FOR UNKNOWN INDICATION
     Dosage: 200 MG (97/103MG), BID
     Route: 048
     Dates: start: 201612
  3. ENTRESTO [Suspect]
     Active Substance: SACUBITRIL\VALSARTAN
     Dosage: 1 DF (97 MG), BID
     Route: 048
  4. WATER PILLS [Concomitant]
     Active Substance: UNSPECIFIED INGREDIENT
     Indication: PRODUCT USED FOR UNKNOWN INDICATION
     Dosage: UNK (DECREASED DOSAGE)
     Route: 065

REACTIONS (21)
  - Nephrolithiasis [Unknown]
  - Weight decreased [Unknown]
  - Chronic kidney disease [Unknown]
  - Decreased appetite [Unknown]
  - Drug hypersensitivity [Unknown]
  - Pruritus [Unknown]
  - Thyroid disorder [Unknown]
  - Pericardial effusion [Unknown]
  - Back pain [Unknown]
  - Insomnia [Unknown]
  - Pain [Unknown]
  - Infection [Unknown]
  - Anal fistula [Unknown]
  - Feeling abnormal [Unknown]
  - Blood sodium decreased [Unknown]
  - Vitamin D decreased [Unknown]
  - Weight increased [Recovered/Resolved]
  - Exposure to SARS-CoV-2 [Unknown]
  - Rash [Unknown]
  - Blood potassium increased [Unknown]
  - Glomerular filtration rate decreased [Unknown]

NARRATIVE: CASE EVENT DATE: 20201201
